FAERS Safety Report 12612685 (Version 6)
Quarter: 2016Q3

REPORT INFORMATION
  Report Type: Report from Study
  Country: FR (occurrence: FR)
  Receive Date: 20160801
  Receipt Date: 20160922
  Transmission Date: 20161109
  Serious: Yes (Hospitalization)
  Sender: FDA-Public Use
  Company Number: PHHO2016FR010746

PATIENT
  Age: 29 Year
  Sex: Male
  Weight: 68 kg

DRUGS (1)
  1. AIN457 [Suspect]
     Active Substance: SECUKINUMAB
     Dosage: 300 MG (2X150 MG)
     Route: 058
     Dates: start: 20160606, end: 20160809

REACTIONS (2)
  - Colitis [Recovering/Resolving]
  - Crohn^s disease [Recovering/Resolving]

NARRATIVE: CASE EVENT DATE: 20160710
